FAERS Safety Report 4764316-1 (Version None)
Quarter: 2005Q3

REPORT INFORMATION
  Report Type: 
  Country: None (occurrence: None)
  Receive Date: 20050907
  Receipt Date: 20050907
  Transmission Date: 20060218
  Serious: Yes (Hospitalization)
  Sender: FDA-Public Use
  Company Number: None

PATIENT
  Age: 48 Year
  Sex: Male
  Weight: 89.5 kg

DRUGS (2)
  1. NAPROSYN [Suspect]
     Dosage: 500MG, BID, ORAL
     Route: 048
     Dates: end: 20050513
  2. LISINOPRIL [Suspect]
     Dosage: 40MGPO
     Route: 048
     Dates: start: 20050513, end: 20050513

REACTIONS (1)
  - RENAL FAILURE ACUTE [None]
